FAERS Safety Report 10066677 (Version 3)
Quarter: 2014Q2

REPORT INFORMATION
  Report Type: Report from Study
  Country: BR (occurrence: BR)
  Receive Date: 20140408
  Receipt Date: 20140502
  Transmission Date: 20141212
  Serious: Yes (Hospitalization)
  Sender: FDA-Public Use
  Company Number: PHHY2014BR040800

PATIENT
  Age: 34 Year
  Sex: Female
  Weight: 69 kg

DRUGS (6)
  1. GILENYA [Suspect]
     Indication: MULTIPLE SCLEROSIS
     Dosage: 0.5 MG, QD
     Route: 048
     Dates: start: 20140225
  2. SOLUMEDROL [Suspect]
     Dosage: 1 G, EVERY 2 HOURS
     Dates: start: 20140326, end: 20140326
  3. PURAN T4 [Concomitant]
     Indication: HYPOTHYROIDISM
     Dosage: 50 MG, QD
     Dates: start: 2013
  4. CERAZETTE [Concomitant]
     Indication: CONTRACEPTION
     Dosage: 75 MG, QD
     Dates: start: 2009
  5. DECADRON                                /CAN/ [Concomitant]
     Dosage: 4 MG, EVERY 8 HOURS
     Dates: start: 20140320, end: 20140325
  6. TYLENOL [Concomitant]
     Indication: PYREXIA
     Dosage: 500 MG, UNK

REACTIONS (10)
  - Pyrexia [Recovered/Resolved]
  - White blood cell count increased [Not Recovered/Not Resolved]
  - Cytomegalovirus infection [Not Recovered/Not Resolved]
  - Chills [Recovered/Resolved]
  - Multiple sclerosis relapse [Recovered/Resolved]
  - Pain [Recovered/Resolved]
  - Joint lock [Recovered/Resolved]
  - Limb discomfort [Recovered/Resolved]
  - Gait disturbance [Recovering/Resolving]
  - Hepatic enzyme increased [Not Recovered/Not Resolved]
